FAERS Safety Report 24175235 (Version 1)
Quarter: 2024Q3

REPORT INFORMATION
  Report Type: Spontaneous
  Country: US (occurrence: US)
  Receive Date: 20240805
  Receipt Date: 20240805
  Transmission Date: 20241017
  Serious: No
  Sender: BRISTOL MYERS SQUIBB
  Company Number: US-BRISTOL-MYERS SQUIBB COMPANY-2024-123128

PATIENT
  Age: 88 Year
  Sex: Female

DRUGS (2)
  1. POMALYST [Suspect]
     Active Substance: POMALIDOMIDE
     Indication: Plasma cell myeloma
     Dosage: QOD
     Route: 048
  2. POMALYST [Suspect]
     Active Substance: POMALIDOMIDE

REACTIONS (4)
  - Nausea [Unknown]
  - Lethargy [Unknown]
  - Malaise [Unknown]
  - Off label use [Unknown]
